FAERS Safety Report 20151798 (Version 2)
Quarter: 2022Q1

REPORT INFORMATION
  Report Type: Spontaneous
  Country: US (occurrence: US)
  Receive Date: 20211206
  Receipt Date: 20220110
  Transmission Date: 20220423
  Serious: No
  Sender: FDA-Public Use
  Company Number: US-MYLANLABS-2021M1085345

PATIENT
  Sex: Female

DRUGS (2)
  1. SCOPOLAMINE [Suspect]
     Active Substance: SCOPOLAMINE
     Indication: Nausea
     Dosage: 1 MILLIGRAM, Q3D
     Route: 062
     Dates: start: 20210828
  2. PROMETHAZINE                       /00033002/ [Concomitant]
     Dosage: 25 MILLIGRAM, 1 OR 2 TIMES A DAY

REACTIONS (2)
  - Therapeutic product effect decreased [Unknown]
  - Product physical issue [Unknown]
